FAERS Safety Report 5006807-4 (Version None)
Quarter: 2006Q2

REPORT INFORMATION
  Report Type: 
  Country: None (occurrence: None)
  Receive Date: 20060516
  Receipt Date: 20060508
  Transmission Date: 20061013
  Serious: Yes (Congenital Anomaly)
  Sender: FDA-Public Use
  Company Number: GXKR2006ES02242

PATIENT
  Sex: Female

DRUGS (5)
  1. TOPIRAMATE [Suspect]
     Dosage: TRANSPLACENTAL
     Route: 064
  2. CARBAMAZEPINE [Suspect]
  3. VALPROIC ACID [Suspect]
  4. FOLIC ACID [Concomitant]
  5. MULTIVITAMINS, PLAIN [Concomitant]

REACTIONS (8)
  - CONGENITAL HAND MALFORMATION [None]
  - CONGENITAL MUSCULOSKELETAL ANOMALY [None]
  - CONGENITAL ORAL MALFORMATION [None]
  - DRUG EXPOSURE DURING PREGNANCY [None]
  - FAMILIAL RISK FACTOR [None]
  - FINGER HYPOPLASIA [None]
  - PHALANGEAL AGENESIS [None]
  - SYNDACTYLY [None]
